FAERS Safety Report 17270716 (Version 3)
Quarter: 2020Q4

REPORT INFORMATION
  Report Type: Report from Study
  Country: None (occurrence: US)
  Receive Date: 20200114
  Receipt Date: 20201003
  Transmission Date: 20210113
  Serious: Yes (Other)
  Sender: FDA-Public Use
  Company Number: US-ABBVIE-20K-163-3230899-00

PATIENT
  Age: 38 Year
  Sex: Female

DRUGS (2)
  1. ORILISSA [Suspect]
     Active Substance: ELAGOLIX SODIUM
     Indication: PRODUCT USED FOR UNKNOWN INDICATION
     Route: 048
  2. HUMIRA [Suspect]
     Active Substance: ADALIMUMAB
     Indication: CROHN^S DISEASE
     Dosage: CITRATE FREE
     Route: 058
     Dates: end: 20200417

REACTIONS (9)
  - Ovarian cyst [Recovered/Resolved]
  - Endometriosis [Recovered/Resolved]
  - Premature menopause [Recovering/Resolving]
  - Mental disorder [Unknown]
  - Crohn^s disease [Recovered/Resolved]
  - Suicidal behaviour [Unknown]
  - Memory impairment [Unknown]
  - Hysterectomy [Recovered/Resolved]
  - Pain [Recovered/Resolved]

NARRATIVE: CASE EVENT DATE: 202001
